FAERS Safety Report 7134629-7 (Version None)
Quarter: 2010Q4

REPORT INFORMATION
  Report Type: 
  Country: None (occurrence: None)
  Receive Date: 20101203
  Receipt Date: 20101124
  Transmission Date: 20110411
  Serious: Yes (Death)
  Sender: FDA-Public Use
  Company Number: DE-GENZYME-POMP-1001210

PATIENT
  Sex: Male
  Weight: 68 kg

DRUGS (1)
  1. MYOZYME [Suspect]
     Indication: GLYCOGEN STORAGE DISEASE TYPE II
     Dosage: 20 MG, Q2W
     Route: 042
     Dates: start: 20080711, end: 20100511

REACTIONS (1)
  - DEATH [None]
